FAERS Safety Report 7544152-3 (Version None)
Quarter: 2011Q2

REPORT INFORMATION
  Report Type: 
  Country: None (occurrence: None)
  Receive Date: 20110613
  Receipt Date: 20060314
  Transmission Date: 20111010
  Serious: Yes (Hospitalization, Other)
  Sender: FDA-Public Use
  Company Number: PHHO2006BR02676

PATIENT
  Age: 78 Year
  Sex: Female
  Weight: 71 kg

DRUGS (6)
  1. GLYBURIDE [Concomitant]
     Indication: DIABETES MELLITUS
     Dosage: 5 MG, QD
     Route: 048
  2. PANTOPRAZOLE [Concomitant]
     Dosage: 40 MG, QD
     Route: 048
  3. GLUCOSAMINE W/CHONDROITIN [Concomitant]
     Indication: OSTEOPOROSIS
     Dates: start: 20051201
  4. DIOVAN HCT [Suspect]
     Indication: HYPERTENSION
     Dosage: 92.5 MG, QD
     Route: 048
  5. MONOCORDIL [Concomitant]
     Indication: VARICOSE VEIN
     Dosage: 40 MG, BID
     Route: 048
  6. AMLODIPINE BESYLATE [Concomitant]

REACTIONS (8)
  - PAIN IN EXTREMITY [None]
  - RETCHING [None]
  - SUFFOCATION FEELING [None]
  - HEART RATE DECREASED [None]
  - VENOUS OCCLUSION [None]
  - MASS [None]
  - INFARCTION [None]
  - AGITATION [None]
